FAERS Safety Report 4264138-4 (Version None)
Quarter: 2004Q1

REPORT INFORMATION
  Report Type: 
  Country: None (occurrence: None)
  Receive Date: 20040106
  Receipt Date: 20040106
  Transmission Date: 20041129
  Serious: No
  Sender: FDA-Public Use
  Company Number: None

PATIENT
  Sex: Male
  Weight: 64.6 kg

DRUGS (7)
  1. METHOTREXATE [Suspect]
     Indication: ACUTE LEUKAEMIA
     Dosage: 5000/M2 OVER 24 HR INTRAVENOUS
     Route: 042
     Dates: start: 20031216, end: 20031227
  2. CYTARABINE [Suspect]
     Dosage: 3 G/M2/D 12 HOURS INTRAVENOUS
     Route: 042
     Dates: start: 20031227, end: 20031229
  3. LEUCOVORIN CALCIUM [Concomitant]
  4. GLEEVEC [Concomitant]
  5. SENADRYL [Concomitant]
  6. REGLAN [Concomitant]
  7. KYTRIL [Concomitant]

REACTIONS (5)
  - ENURESIS [None]
  - EYE ROLLING [None]
  - LOSS OF CONSCIOUSNESS [None]
  - POSTICTAL STATE [None]
  - TREMOR [None]
